FAERS Safety Report 7238080-0 (Version None)
Quarter: 2011Q1

REPORT INFORMATION
  Report Type: 
  Country: None (occurrence: None)
  Receive Date: 20110121
  Receipt Date: 20110118
  Transmission Date: 20110831
  Serious: Yes (Hospitalization)
  Sender: FDA-Public Use
  Company Number: B0694136A

PATIENT
  Sex: Male

DRUGS (2)
  1. AUGMENTIN [Suspect]
     Indication: BRONCHITIS
     Route: 065
     Dates: start: 20100302, end: 20100315
  2. FLUOROQUINOLONE [Concomitant]
     Indication: BRONCHITIS
     Route: 048

REACTIONS (5)
  - SKIN FISSURES [None]
  - DERMATITIS EXFOLIATIVE [None]
  - RASH MACULO-PAPULAR [None]
  - OEDEMA [None]
  - PYREXIA [None]
